FAERS Safety Report 25343596 (Version 2)
Quarter: 2025Q4

REPORT INFORMATION
  Report Type: Spontaneous
  Country: JP (occurrence: JP)
  Receive Date: 20250521
  Receipt Date: 20251111
  Transmission Date: 20260117
  Serious: Yes (Life-Threatening, Hospitalization, Other)
  Sender: DAIICHI
  Company Number: JP-DSJP-DS-2025-141764-JP

PATIENT
  Age: 54 Year
  Sex: Female

DRUGS (1)
  1. EDOXABAN TOSYLATE [Suspect]
     Active Substance: EDOXABAN TOSYLATE
     Indication: Product used for unknown indication
     Dosage: 60 MG, QD
     Route: 048

REACTIONS (17)
  - Agonal respiration [Recovered/Resolved]
  - Ventricular fibrillation [Recovered/Resolved]
  - Altered state of consciousness [Recovered/Resolved]
  - Electrocardiogram QT prolonged [Recovered/Resolved]
  - Prothrombin time abnormal [Unknown]
  - Activated partial thromboplastin time abnormal [Unknown]
  - Aspartate aminotransferase abnormal [Unknown]
  - Alanine aminotransferase abnormal [Unknown]
  - Restlessness [Recovered/Resolved]
  - White blood cell disorder [Unknown]
  - Protein total abnormal [Unknown]
  - Blood lactate dehydrogenase abnormal [Unknown]
  - Blood creatine phosphokinase MB abnormal [Unknown]
  - Blood creatinine abnormal [Unknown]
  - Blood glucose abnormal [Unknown]
  - N-terminal prohormone brain natriuretic peptide abnormal [Unknown]
  - Troponin T increased [Unknown]
